FAERS Safety Report 6160412-5 (Version None)
Quarter: 2009Q2

REPORT INFORMATION
  Report Type: 
  Country: None (occurrence: None)
  Receive Date: 20090416
  Receipt Date: 20090331
  Transmission Date: 20091009
  Serious: Yes (Hospitalization)
  Sender: FDA-Public Use
  Company Number: 2007-02350

PATIENT
  Age: 43 Year
  Sex: Male
  Weight: 69 kg

DRUGS (7)
  1. VELCADE [Suspect]
     Indication: T-CELL LYMPHOMA
     Dosage: 2.80 MG, UNK, INTRAVENOUS
     Route: 042
     Dates: start: 20070416, end: 20070615
  2. DOXORUBICIN HCL [Suspect]
     Indication: T-CELL LYMPHOMA
     Dosage: 140.00 MG, UNK, INTRAVENOUS
     Route: 042
     Dates: start: 20070416, end: 20070612
  3. CYCLOPHOSPHAMIDE [Suspect]
     Indication: T-CELL LYMPHOMA
     Dosage: 2200.00 MG, UNK, INTRAVENOUS
     Route: 036
     Dates: start: 20070416, end: 20070612
  4. ELDISINE [Suspect]
     Indication: T-CELL LYMPHOMA
     Dosage: 3.74 MG, UNK, INTRAVENOUS
     Route: 042
     Dates: start: 20070416, end: 20070615
  5. BLEOMYCIN SULFATE [Suspect]
     Indication: T-CELL LYMPHOMA
     Dosage: 10.00 MG, UNK, INTRAVENOUS
     Route: 042
     Dates: start: 20070416, end: 20070615
  6. METHOTREXATE [Suspect]
     Indication: T-CELL LYMPHOMA
     Dosage: 15.00 MG, UNK, INTRAVENOUS
     Route: 042
     Dates: start: 20070420, end: 20070615
  7. GRANOCYTE 13-34(LENOGRASTIM) INJECTION [Suspect]
     Indication: T-CELL LYMPHOMA
     Dosage: 5.00 KG, UNK, UNKNOWN

REACTIONS (1)
  - PANCYTOPENIA [None]
